FAERS Safety Report 20703169 (Version 2)
Quarter: 2022Q2

REPORT INFORMATION
  Report Type: Report from Study
  Country: US (occurrence: US)
  Receive Date: 20220413
  Receipt Date: 20220525
  Transmission Date: 20220720
  Serious: Yes (Hospitalization)
  Sender: FDA-Public Use
  Company Number: US-JNJFOC-20220411607

PATIENT
  Age: 24 Year
  Sex: Male

DRUGS (15)
  1. INFLIXIMAB [Suspect]
     Active Substance: INFLIXIMAB
     Indication: Inflammatory bowel disease
     Route: 042
     Dates: start: 20120425, end: 20190314
  2. HUMIRA [Concomitant]
     Active Substance: ADALIMUMAB
  3. ONDANSETRON [Concomitant]
     Active Substance: ONDANSETRON
  4. ZINC SULFATE [Concomitant]
     Active Substance: ZINC SULFATE
  5. PREGABALIN [Concomitant]
     Active Substance: PREGABALIN
  6. SIMETHICONE (DIMETHICONE) [Concomitant]
     Active Substance: DIMETHICONE
  7. KETOCONAZOLE [Concomitant]
     Active Substance: KETOCONAZOLE
  8. DOXYCYCLINE HYCLATE [Concomitant]
     Active Substance: DOXYCYCLINE HYCLATE
  9. CLINDAMYCIN PHOSPHATE [Concomitant]
     Active Substance: CLINDAMYCIN PHOSPHATE
  10. BENZOYL PEROXIDE [Concomitant]
     Active Substance: BENZOYL PEROXIDE
  11. SULFAMETHOXAZOLE\TRIMETHOPRIM [Concomitant]
     Active Substance: SULFAMETHOXAZOLE\TRIMETHOPRIM
  12. HYDROMORPHONE HCL [Concomitant]
     Active Substance: HYDROMORPHONE HYDROCHLORIDE
  13. TOFACITINIB [Concomitant]
     Active Substance: TOFACITINIB
  14. ERGOCALCIFEROL [Concomitant]
     Active Substance: ERGOCALCIFEROL
  15. PREDNISONE [Concomitant]
     Active Substance: PREDNISONE

REACTIONS (1)
  - Abdominal pain lower [Recovered/Resolved]

NARRATIVE: CASE EVENT DATE: 20211113
